FAERS Safety Report 5905410-9 (Version None)
Quarter: 2008Q4

REPORT INFORMATION
  Report Type: 
  Country: None (occurrence: None)
  Receive Date: 20081001
  Receipt Date: 20080922
  Transmission Date: 20090506
  Serious: Yes (Hospitalization)
  Sender: FDA-Public Use
  Company Number: US-ABBOTT-08P-163-0477625-00

PATIENT
  Sex: Female
  Weight: 72.64 kg

DRUGS (9)
  1. HUMIRA [Suspect]
     Indication: CROHN'S DISEASE
     Route: 058
     Dates: start: 20060101, end: 20080101
  2. HUMIRA [Suspect]
     Route: 058
     Dates: start: 20080201
  3. AZATHIOPRINE [Concomitant]
     Indication: CYSTITIS
     Route: 048
  4. DETRAL LA [Concomitant]
     Indication: CYSTITIS
     Route: 048
  5. FLUTICASONE PROPIONATE [Concomitant]
     Indication: SEASONAL ALLERGY
     Route: 048
  6. GLICLAZIDE [Concomitant]
     Indication: SEASONAL ALLERGY
     Route: 048
  7. VITAMIN TAB [Concomitant]
     Indication: PREGNANCY
  8. DIPHENHYDRAMINE HYDROCHLORIDE [Concomitant]
     Indication: INSOMNIA
     Route: 048
  9. MELATONIN [Concomitant]
     Indication: INSOMNIA
     Route: 048

REACTIONS (5)
  - COLONIC STENOSIS [None]
  - INJECTION SITE IRRITATION [None]
  - INJECTION SITE PAIN [None]
  - LARGE INTESTINE ANASTOMOSIS [None]
  - PAIN [None]
